FAERS Safety Report 10031307 (Version 1)
Quarter: 2014Q1

REPORT INFORMATION
  Report Type: Spontaneous
  Country: US (occurrence: US)
  Receive Date: 20140324
  Receipt Date: 20140324
  Transmission Date: 20141002
  Serious: No
  Sender: FDA-Public Use
  Company Number: US-009507513-1403USA005444

PATIENT
  Age: 16 Year
  Sex: Female
  Weight: 68.93 kg

DRUGS (1)
  1. NEXPLANON [Suspect]
     Indication: CONTRACEPTION
     Dosage: 1 DF, UNK,IMPLANT IN HER LEFT ARM
     Route: 059
     Dates: start: 20130422

REACTIONS (10)
  - Psoriasis [Unknown]
  - Back pain [Not Recovered/Not Resolved]
  - Pain in extremity [Unknown]
  - Dizziness [Unknown]
  - Metrorrhagia [Recovered/Resolved]
  - Metrorrhagia [Recovered/Resolved]
  - Increased appetite [Unknown]
  - Weight increased [Unknown]
  - Breast pain [Unknown]
  - Bone pain [Unknown]
